FAERS Safety Report 20611233 (Version 1)
Quarter: 2022Q1

REPORT INFORMATION
  Report Type: Spontaneous
  Country: JP (occurrence: JP)
  Receive Date: 20220318
  Receipt Date: 20220318
  Transmission Date: 20220423
  Serious: Yes (Other)
  Sender: FDA-Public Use
  Company Number: JP-GLAXOSMITHKLINE-JP2022JPN046252

PATIENT
  Age: 7 Year
  Sex: Male
  Weight: 27.2 kg

DRUGS (2)
  1. FLUTICASONE PROPIONATE [Suspect]
     Active Substance: FLUTICASONE PROPIONATE
     Indication: Asthma
     Dosage: 400 UG/DAY
  2. FLUTICASONE PROPIONATE [Suspect]
     Active Substance: FLUTICASONE PROPIONATE
     Dosage: UNK, REDUCED

REACTIONS (4)
  - Growth retardation [Unknown]
  - Adrenal suppression [Unknown]
  - Growth disorder [Unknown]
  - Prescribed overdose [Unknown]
